FAERS Safety Report 15298647 (Version 2)
Quarter: 2018Q4

REPORT INFORMATION
  Report Type: Spontaneous
  Country: JP (occurrence: JP)
  Receive Date: 20180820
  Receipt Date: 20181105
  Transmission Date: 20190204
  Serious: Yes (Other)
  Sender: FDA-Public Use
  Company Number: JP-NAPPMUNDI-GBR-2018-0053442

PATIENT
  Age: 70 Year
  Sex: Male

DRUGS (5)
  1. METHADONE HYDROCHLORIDE. [Suspect]
     Active Substance: METHADONE HYDROCHLORIDE
     Indication: CANCER PAIN
     Dosage: 30 MG, PM
     Route: 048
     Dates: start: 20180205
  2. CEROCRAL [Suspect]
     Active Substance: IFENPRODIL
     Indication: CANCER PAIN
     Dosage: UNK
     Route: 065
     Dates: start: 20180203, end: 20180203
  3. OXIFAST [Suspect]
     Active Substance: OXYCODONE
     Indication: CANCER PAIN
     Dosage: 300 MG, DAILY
     Route: 041
  4. OXIFAST [Suspect]
     Active Substance: OXYCODONE
     Dosage: 240 MG, DAILY
     Route: 041
     Dates: start: 201801
  5. METHADONE HYDROCHLORIDE. [Suspect]
     Active Substance: METHADONE HYDROCHLORIDE
     Dosage: 15 MG, DAILY
     Route: 048
     Dates: start: 20180204, end: 20180204

REACTIONS (3)
  - Restlessness [Not Recovered/Not Resolved]
  - Delirium [Recovered/Resolved]
  - Somnolence [Not Recovered/Not Resolved]

NARRATIVE: CASE EVENT DATE: 201802
